FAERS Safety Report 5017979-X (Version None)
Quarter: 2006Q2

REPORT INFORMATION
  Report Type: 
  Country: None (occurrence: None)
  Receive Date: 20060605
  Receipt Date: 20060522
  Transmission Date: 20061013
  Serious: Yes (Other)
  Sender: FDA-Public Use
  Company Number: NL-GLAXOSMITHKLINE-B0425888A

PATIENT
  Age: 41 Year
  Sex: Male
  Weight: 73 kg

DRUGS (2)
  1. CLAMOXYL [Suspect]
     Indication: RESPIRATORY TRACT INFECTION
     Dosage: 500MG UNKNOWN
     Route: 065
     Dates: start: 20060401
  2. NOSCAPECT [Concomitant]
     Indication: COUGH
     Dosage: 90MG PER DAY
     Route: 065
     Dates: start: 20060401

REACTIONS (3)
  - DYSPEPSIA [None]
  - FATIGUE [None]
  - HEPATITIS [None]
